FAERS Safety Report 6498009-X (Version None)
Quarter: 2009Q4

REPORT INFORMATION
  Report Type: 
  Country: None (occurrence: None)
  Receive Date: 20091215
  Receipt Date: 20091203
  Transmission Date: 20100525
  Serious: Yes (Other)
  Sender: FDA-Public Use
  Company Number: PHEH2009US17325

PATIENT
  Sex: Female

DRUGS (1)
  1. GLEEVEC [Suspect]
     Dosage: UNK, UNK
     Route: 065
     Dates: start: 20090315

REACTIONS (4)
  - ARTHRALGIA [None]
  - ELECTROCARDIOGRAM QT PROLONGED [None]
  - MUSCLE SPASMS [None]
  - PAIN IN EXTREMITY [None]
